FAERS Safety Report 15845193 (Version 2)
Quarter: 2023Q4

REPORT INFORMATION
  Report Type: Spontaneous
  Country: US (occurrence: US)
  Receive Date: 20190119
  Receipt Date: 20231004
  Transmission Date: 20240109
  Serious: Yes (Other)
  Sender: FDA-Public Use
  Company Number: US-JNJFOC-20190109622

PATIENT
  Age: 17 Year
  Sex: Male

DRUGS (6)
  1. RISPERIDONE [Suspect]
     Active Substance: RISPERIDONE
     Indication: Product used for unknown indication
     Route: 048
     Dates: start: 20120320, end: 20130131
  2. INVEGA [Suspect]
     Active Substance: PALIPERIDONE
     Indication: Behaviour disorder
     Route: 048
     Dates: start: 20120320, end: 20140318
  3. INVEGA [Suspect]
     Active Substance: PALIPERIDONE
     Indication: Schizophrenia
  4. RISPERDAL [Suspect]
     Active Substance: RISPERIDONE
     Indication: Schizophrenia
     Route: 048
  5. RISPERDAL [Suspect]
     Active Substance: RISPERIDONE
     Indication: Agitation
  6. RISPERDAL [Suspect]
     Active Substance: RISPERIDONE
     Indication: Irritability

REACTIONS (4)
  - Abnormal weight gain [Unknown]
  - Heart rate increased [Unknown]
  - Emotional disorder [Unknown]
  - Gynaecomastia [Unknown]

NARRATIVE: CASE EVENT DATE: 20130201
